FAERS Safety Report 9337940 (Version 5)
Quarter: 2013Q3

REPORT INFORMATION
  Report Type: Spontaneous
  Country: FR (occurrence: FR)
  Receive Date: 20130609
  Receipt Date: 20130906
  Transmission Date: 20140515
  Serious: Yes (Death)
  Sender: FDA-Public Use
  Company Number: FR-SANOFI-AVENTIS-2013SA051557

PATIENT
  Age: 54 Year
  Sex: Female

DRUGS (20)
  1. LOVENOX [Suspect]
     Indication: THROMBOSIS PROPHYLAXIS
     Route: 058
     Dates: start: 20130502, end: 20130512
  2. LOVENOX [Suspect]
     Indication: THROMBOSIS PROPHYLAXIS
     Route: 058
     Dates: start: 20130502, end: 20130512
  3. LOVENOX [Suspect]
     Indication: THROMBOSIS PROPHYLAXIS
     Route: 058
     Dates: start: 20130502, end: 20130512
  4. LOVENOX [Suspect]
     Indication: THROMBOSIS PROPHYLAXIS
     Route: 058
     Dates: start: 20130502, end: 20130512
  5. LOVENOX [Suspect]
     Indication: THROMBOSIS PROPHYLAXIS
     Route: 058
     Dates: start: 20130502, end: 20130512
  6. CONTRAMAL [Concomitant]
     Dosage: 100 MG
  7. PARACETAMOL [Concomitant]
     Dosage: 1 G
  8. INEXIUM [Concomitant]
     Dosage: 40 MG
     Route: 048
  9. IMOVANE [Concomitant]
     Dosage: 7.5 MG
  10. KARDEGIC [Concomitant]
     Dosage: 160 MG
  11. CORTANCYL [Concomitant]
     Dosage: 20 MG
     Route: 048
  12. SEROPLEX [Concomitant]
     Dosage: 20 MG/ML
  13. XANAX [Concomitant]
     Dosage: 0.25 MG
  14. ISENTRESS [Concomitant]
     Dosage: 400 MG
  15. ROVALCYTE [Concomitant]
     Dosage: 450 MG
  16. TRUVADA [Concomitant]
  17. SPECIAFOLDINE [Concomitant]
  18. FUMAFER [Concomitant]
  19. BRICANYL [Concomitant]
  20. CALCIPARINE [Concomitant]

REACTIONS (4)
  - Cardiac arrest [Fatal]
  - Dyspnoea [Unknown]
  - Abdominal distension [Unknown]
  - Product quality issue [Unknown]
